FAERS Safety Report 7558963-1 (Version None)
Quarter: 2011Q2

REPORT INFORMATION
  Report Type: 
  Country: None (occurrence: None)
  Receive Date: 20110621
  Receipt Date: 20110609
  Transmission Date: 20111010
  Serious: Yes (Hospitalization)
  Sender: FDA-Public Use
  Company Number: PH-JNJFOC-20110606522

PATIENT
  Sex: Female
  Weight: 44 kg

DRUGS (10)
  1. GOLIMUMAB [Suspect]
     Route: 058
     Dates: start: 20110522
  2. PLACEBO [Suspect]
     Indication: RHEUMATOID ARTHRITIS
     Route: 047
     Dates: start: 20060916, end: 20080419
  3. GOLIMUMAB [Suspect]
     Route: 058
     Dates: start: 20110204
  4. FOLIC ACID [Concomitant]
     Route: 048
     Dates: start: 20060817
  5. ASCORBIC ACID [Concomitant]
     Route: 048
     Dates: start: 20070501
  6. PREDNISONE [Concomitant]
     Route: 048
     Dates: start: 20050809
  7. CALCIUM CARBONATE [Concomitant]
     Route: 048
     Dates: start: 20070501
  8. BONIVA [Concomitant]
     Route: 048
     Dates: start: 20060721
  9. METHOTREXATE [Concomitant]
     Route: 048
     Dates: start: 20080801
  10. GOLIMUMAB [Suspect]
     Indication: RHEUMATOID ARTHRITIS
     Route: 058
     Dates: start: 20060914

REACTIONS (2)
  - CHOLELITHIASIS [None]
  - TUBERCULOSIS GASTROINTESTINAL [None]
